FAERS Safety Report 6753294-1 (Version None)
Quarter: 2010Q2

REPORT INFORMATION
  Report Type: 
  Country: None (occurrence: None)
  Receive Date: 20100603
  Receipt Date: 20100520
  Transmission Date: 20101027
  Serious: Yes (Hospitalization)
  Sender: FDA-Public Use
  Company Number: US-ELI_LILLY_AND_COMPANY-US201003007639

PATIENT
  Sex: Female

DRUGS (8)
  1. FORTEO [Suspect]
     Indication: OSTEOPOROSIS
     Dosage: 20 UG, DAILY (1/D)
     Dates: start: 20090101
  2. SYNTHROID [Concomitant]
     Dosage: 100 UG, DAILY (1/D)
  3. FELODIPINE [Concomitant]
     Dosage: 10 MG, EACH EVENING
  4. CALCIUM W/MAGNESIUM/VITAMIN D [Concomitant]
     Dosage: 1000 MG, 2/D
  5. VITAMIN C [Concomitant]
     Dosage: 1000 MG, 3/D
  6. MULTI-VITAMIN [Concomitant]
     Dosage: UNK, DAILY (1/D)
  7. NEURONTIN [Concomitant]
     Dosage: 300 MG, TWO IN THE MORNING, ONE AT NOON, AND TWO AT BEDTIME
     Route: 048
  8. PHAZYME /00164001/ [Concomitant]
     Dosage: 100 MG, DAILY (1/D)

REACTIONS (3)
  - BASAL CELL CARCINOMA [None]
  - CATARACT [None]
  - DIVERTICULITIS [None]
